FAERS Safety Report 6081775-5 (Version None)
Quarter: 2009Q1

REPORT INFORMATION
  Report Type: 
  Country: None (occurrence: None)
  Receive Date: 20090218
  Receipt Date: 20090206
  Transmission Date: 20090719
  Serious: Yes (Hospitalization)
  Sender: FDA-Public Use
  Company Number: JP-PFIZER INC-2009167663

PATIENT

DRUGS (3)
  1. ZYVOX [Suspect]
     Dosage: 600 MG, 2X/DAY
     Route: 048
     Dates: start: 20090114, end: 20090118
  2. HABEKACIN [Concomitant]
     Dosage: UNK
     Dates: start: 20081226, end: 20090107
  3. VANCOMYCIN [Concomitant]
     Dates: start: 20090108

REACTIONS (1)
  - EPILEPSY [None]
